FAERS Safety Report 8467910-X (Version None)
Quarter: 2012Q2

REPORT INFORMATION
  Report Type: 
  Country: None (occurrence: None)
  Receive Date: 20120626
  Receipt Date: 20120616
  Transmission Date: 20120825
  Serious: Yes (Other)
  Sender: FDA-Public Use
  Company Number: JP-BRISTOL-MYERS SQUIBB COMPANY-16690729

PATIENT

DRUGS (2)
  1. TAXOL [Suspect]
     Route: 041
  2. CLONAZEPAM [Concomitant]

REACTIONS (1)
  - PARALYSIS [None]
